FAERS Safety Report 7365104-2 (Version None)
Quarter: 2011Q1

REPORT INFORMATION
  Report Type: 
  Country: None (occurrence: None)
  Receive Date: 20110321
  Receipt Date: 20110316
  Transmission Date: 20110831
  Serious: Yes (Hospitalization)
  Sender: FDA-Public Use
  Company Number: JP-PFIZER INC-2011024403

PATIENT
  Age: 54 Year
  Sex: Male
  Weight: 74.8 kg

DRUGS (10)
  1. TPN ELECTROLYTES IN PLASTIC CONTAINER [Concomitant]
     Indication: DECREASED APPETITE
     Dosage: 500 ML, 1X/DAY
     Route: 042
     Dates: end: 20101208
  2. NAIXAN [Concomitant]
     Indication: RENAL CELL CARCINOMA
     Dosage: 100 MG, 3X/DAY
     Route: 048
  3. OXYCONTIN [Concomitant]
     Indication: RENAL CELL CARCINOMA
     Dosage: 20 MG, 2X/DAY
     Route: 048
  4. OMEPRAL [Concomitant]
     Dosage: 20 MG, 1X/DAY
     Route: 048
  5. TEMSIROLIMUS [Suspect]
     Indication: METASTATIC RENAL CELL CARCINOMA
     Dosage: 25 MG, WEEKLY
     Route: 042
     Dates: start: 20101207
  6. NOVAMIN [Concomitant]
     Indication: PROPHYLAXIS
     Dosage: 5 MG, 3X/DAY
  7. CHLOR-TRIMETON [Concomitant]
     Indication: PROPHYLAXIS
     Dosage: 10 MG, 1X/DAY
     Route: 042
  8. MUCOSTA [Concomitant]
     Indication: PROPHYLAXIS
     Dosage: 100 MG, 3X/DAY
  9. BIOFERMIN [Concomitant]
     Indication: PROPHYLAXIS AGAINST DIARRHOEA
     Dosage: 1 G, 3X/DAY
     Route: 048
  10. ADONA [Concomitant]
     Indication: PROPHYLAXIS
     Dosage: 30 MG, 3X/DAY
     Route: 048

REACTIONS (1)
  - HAEMATOCHEZIA [None]
